FAERS Safety Report 9950312 (Version 1)
Quarter: 2014Q1

REPORT INFORMATION
  Report Type: Report from Study
  Country: US (occurrence: US)
  Receive Date: 20140304
  Receipt Date: 20140304
  Transmission Date: 20141002
  Serious: No
  Sender: FDA-Public Use
  Company Number: US-ABBVIE-13P-163-1067543-00

PATIENT
  Age: 62 Year
  Sex: Female

DRUGS (11)
  1. HUMIRA [Suspect]
     Indication: COLITIS ULCERATIVE
     Dosage: LOADING DOSE
     Route: 058
     Dates: start: 20130218, end: 20130218
  2. HUMIRA [Suspect]
     Dosage: LOADING DOSE
     Route: 058
     Dates: start: 20130304, end: 20130304
  3. HUMIRA [Suspect]
     Route: 058
  4. HYDROCHLOROTHIAZIDE [Concomitant]
     Indication: PRODUCT USED FOR UNKNOWN INDICATION
  5. LIALDA [Concomitant]
     Indication: COLITIS ULCERATIVE
     Dosage: TAPERING DOSE
  6. MORBIC [Concomitant]
     Indication: PAIN
  7. CLIMARA [Concomitant]
     Indication: HORMONE REPLACEMENT THERAPY
  8. ESTROGEN [Concomitant]
     Indication: HORMONE REPLACEMENT THERAPY
  9. FISH OIL [Concomitant]
     Indication: PRODUCT USED FOR UNKNOWN INDICATION
  10. NIACIN [Concomitant]
     Indication: PRODUCT USED FOR UNKNOWN INDICATION
  11. ASA [Concomitant]
     Indication: ANTIPLATELET THERAPY

REACTIONS (6)
  - Injection site pain [Recovering/Resolving]
  - Injection site pain [Recovering/Resolving]
  - Skin infection [Unknown]
  - Skin swelling [Unknown]
  - Blister [Unknown]
  - Erythema [Unknown]
